FAERS Safety Report 18639519 (Version 2)
Quarter: 2021Q1

REPORT INFORMATION
  Report Type: Spontaneous
  Country: DE (occurrence: DE)
  Receive Date: 20201219
  Receipt Date: 20210129
  Transmission Date: 20210419
  Serious: Yes (Other)
  Sender: FDA-Public Use
  Company Number: DE-MYLANLABS-2020M1101944

PATIENT
  Age: 50 Year
  Sex: Female

DRUGS (5)
  1. FULVESTRANT. [Suspect]
     Active Substance: FULVESTRANT
     Dosage: 500 MILLIGRAM
     Route: 030
     Dates: start: 201803, end: 202005
  2. PALBOCICLIB [Suspect]
     Active Substance: PALBOCICLIB
     Dosage: 125 MILLIGRAM, QD
     Route: 048
     Dates: start: 201803, end: 202005
  3. PALBOCICLIB [Suspect]
     Active Substance: PALBOCICLIB
     Indication: BREAST CANCER
     Dosage: 125 MILLIGRAM, QD
     Route: 048
  4. PALBOCICLIB [Suspect]
     Active Substance: PALBOCICLIB
     Dosage: 125 MILLIGRAM, QD
     Route: 048
     Dates: start: 20180205
  5. FULVESTRANT. [Suspect]
     Active Substance: FULVESTRANT
     Indication: BREAST CANCER
     Dosage: 500 MG, UNKNOWN, THERAPY MAR?2018 TO MAY?2020 (22 CYCLES),
     Route: 030
     Dates: start: 20180205

REACTIONS (4)
  - Metastases to liver [Unknown]
  - General physical health deterioration [Not Recovered/Not Resolved]
  - Metastases to peritoneum [Unknown]
  - Neoplasm progression [Unknown]
